FAERS Safety Report 6905129-1 (Version None)
Quarter: 2010Q3

REPORT INFORMATION
  Report Type: 
  Country: None (occurrence: None)
  Receive Date: 20100804
  Receipt Date: 20091007
  Transmission Date: 20110219
  Serious: Yes (Other)
  Sender: FDA-Public Use
  Company Number: US-PFIZER INC-2009244636

PATIENT
  Sex: Male
  Weight: 123 kg

DRUGS (2)
  1. LYRICA [Suspect]
     Indication: CONVULSION
     Dosage: 75 MG, 2X/DAY
  2. DEPAKOTE [Concomitant]
     Dosage: UNK

REACTIONS (2)
  - CONVULSION [None]
  - OEDEMA [None]
